FAERS Safety Report 16058408 (Version 3)
Quarter: 2019Q2

REPORT INFORMATION
  Report Type: Spontaneous
  Country: GB (occurrence: GB)
  Receive Date: 20190311
  Receipt Date: 20190402
  Transmission Date: 20190711
  Serious: Yes (Death, Other)
  Sender: FDA-Public Use
  Company Number: GB-TEVA-2019-GB-1021156

PATIENT
  Age: 22 Year
  Sex: Female

DRUGS (11)
  1. MEROPENEM. [Suspect]
     Active Substance: MEROPENEM
     Indication: NEUTROPENIC SEPSIS
     Dosage: 2 GRAM DAILY; 1 GRAM, BID
     Route: 042
     Dates: start: 20080529, end: 20080618
  2. CANCIDAS [Concomitant]
     Active Substance: CASPOFUNGIN ACETATE
     Dosage: 35 MG, UNK
     Route: 042
     Dates: start: 200805
  3. CUBICIN [Suspect]
     Active Substance: DAPTOMYCIN
     Indication: ENTEROCOCCAL SEPSIS
  4. CANCIDAS [Concomitant]
     Active Substance: CASPOFUNGIN ACETATE
     Indication: FUNGAL INFECTION
  5. LEVETIRACETAM. [Concomitant]
     Active Substance: LEVETIRACETAM
     Indication: PRODUCT USED FOR UNKNOWN INDICATION
     Dosage: UNK
     Route: 065
  6. CUBICIN [Suspect]
     Active Substance: DAPTOMYCIN
     Indication: ENTEROCOCCAL INFECTION
     Dosage: 350 MILLIGRAM DAILY; 350 MG, Q48H
     Route: 042
     Dates: start: 20080609, end: 20080618
  7. CICLOSPORIN [Suspect]
     Active Substance: CYCLOSPORINE
     Indication: APLASTIC ANAEMIA
     Dosage: UNK
     Route: 065
     Dates: start: 200805
  8. THIOPENTAL [Concomitant]
     Active Substance: THIOPENTAL
     Indication: PRODUCT USED FOR UNKNOWN INDICATION
     Dosage: UNK
     Route: 065
  9. CANCIDAS [Concomitant]
     Active Substance: CASPOFUNGIN ACETATE
     Indication: PRODUCT USED FOR UNKNOWN INDICATION
     Dosage: 35 MILLIGRAM
     Route: 065
     Dates: start: 201805
  10. TRANEXAMIC ACID. [Concomitant]
     Active Substance: TRANEXAMIC ACID
     Indication: HAEMORRHAGE
     Dosage: 3 GRAM DAILY; 1 G, TID
     Route: 042
     Dates: start: 20080602, end: 20080618
  11. CASPOFUNGIN [Concomitant]
     Active Substance: CASPOFUNGIN
     Indication: FUNGAL INFECTION
     Dosage: 35 MG PER DAY

REACTIONS (7)
  - Seizure [Unknown]
  - Nosocomial infection [Unknown]
  - Haemorrhage intracranial [Fatal]
  - Death [Fatal]
  - Brain oedema [Fatal]
  - Enterococcal sepsis [Unknown]
  - Fungal infection [Unknown]

NARRATIVE: CASE EVENT DATE: 20080616
